FAERS Safety Report 5166323-6 (Version None)
Quarter: 2006Q4

REPORT INFORMATION
  Report Type: 
  Country: None (occurrence: None)
  Receive Date: 20061129
  Receipt Date: 20061024
  Transmission Date: 20070319
  Serious: Yes (Death)
  Sender: FDA-Public Use
  Company Number: AND_AAPCC_2006_0980

PATIENT
  Age: 65 Year

DRUGS (3)
  1. METFORMIN [Suspect]
     Dosage: DF UNK 047
  2. SULFONYLUREA [Suspect]
     Dosage: DF UNK 047
  3. ATENOLOL [Suspect]
     Dosage: DF UNK 047

REACTIONS (1)
  - COMPLETED SUICIDE [None]
